FAERS Safety Report 21669379 (Version 2)
Quarter: 2023Q2

REPORT INFORMATION
  Report Type: Report from Study
  Country: US (occurrence: US)
  Receive Date: 20221201
  Receipt Date: 20230630
  Transmission Date: 20230721
  Serious: Yes (Other)
  Sender: FDA-Public Use
  Company Number: US-JAZZ-2022-US-036671

PATIENT
  Sex: Male

DRUGS (1)
  1. EPIDIOLEX [Suspect]
     Active Substance: CANNABIDIOL
     Indication: Idiopathic generalised epilepsy
     Dosage: 5 MILLILITER
     Route: 048
     Dates: start: 202208

REACTIONS (4)
  - Seizure [Unknown]
  - Incontinence [Unknown]
  - Product colour issue [Unknown]
  - Off label use [Unknown]
